FAERS Safety Report 11837027 (Version 1)
Quarter: 2015Q4

REPORT INFORMATION
  Report Type: Spontaneous
  Country: US (occurrence: US)
  Receive Date: 20151215
  Receipt Date: 20151215
  Transmission Date: 20160305
  Serious: Yes (Other)
  Sender: FDA-Public Use
  Company Number: US-BAYER-2015-483868

PATIENT
  Age: 81 Year
  Sex: Male
  Weight: 72.57 kg

DRUGS (3)
  1. SIMVASTATIN. [Concomitant]
     Active Substance: SIMVASTATIN
     Indication: BLOOD CHOLESTEROL
  2. LOSARTAN. [Concomitant]
     Active Substance: LOSARTAN
     Indication: HYPERTENSION
  3. NEXAVAR [Suspect]
     Active Substance: SORAFENIB
     Indication: METASTATIC RENAL CELL CARCINOMA
     Route: 048

REACTIONS (4)
  - Fatigue [Recovered/Resolved]
  - Influenza like illness [Recovered/Resolved]
  - Drug ineffective [None]
  - Sinusitis [Recovered/Resolved]

NARRATIVE: CASE EVENT DATE: 201510
